FAERS Safety Report 13942251 (Version 1)
Quarter: 2017Q3

REPORT INFORMATION
  Report Type: Spontaneous
  Country: US (occurrence: US)
  Receive Date: 20170907
  Receipt Date: 20170907
  Transmission Date: 20171127
  Serious: Yes (Hospitalization, Other)
  Sender: FDA-Public Use
  Company Number: US-AMNEAL PHARMACEUTICALS-2017AMN00828

PATIENT
  Age: 54 Year
  Sex: Male

DRUGS (6)
  1. FLUOXETINE [Concomitant]
     Active Substance: FLUOXETINE HYDROCHLORIDE
     Dosage: UNK
     Route: 065
  2. CLOZAPINE. [Concomitant]
     Active Substance: CLOZAPINE
     Dosage: UNK
     Route: 065
  3. OSELTAMIVIR PHOSPHATE. [Suspect]
     Active Substance: OSELTAMIVIR PHOSPHATE
     Indication: INFLUENZA LIKE ILLNESS
     Dosage: UNK
     Route: 065
  4. PROPRANOLOL [Concomitant]
     Active Substance: PROPRANOLOL HYDROCHLORIDE
     Dosage: UNK
     Route: 065
  5. PRIMIDONE. [Concomitant]
     Active Substance: PRIMIDONE
     Dosage: UNK
     Route: 065
  6. LITHIUM. [Concomitant]
     Active Substance: LITHIUM
     Dosage: UNK
     Route: 065

REACTIONS (5)
  - Tremor [Recovering/Resolving]
  - Clonus [Recovering/Resolving]
  - Hyperreflexia [Recovering/Resolving]
  - Mental status changes [Recovering/Resolving]
  - Serotonin syndrome [Recovering/Resolving]
